FAERS Safety Report 6358550-7 (Version None)
Quarter: 2009Q3

REPORT INFORMATION
  Report Type: 
  Country: None (occurrence: None)
  Receive Date: 20090914
  Receipt Date: 20090901
  Transmission Date: 20100115
  Serious: Yes (Other)
  Sender: FDA-Public Use
  Company Number: 2009AP002543

PATIENT
  Age: 84 Year
  Sex: Male
  Weight: 81.1939 kg

DRUGS (19)
  1. SOTALOL HCL [Suspect]
     Indication: HEART RATE IRREGULAR
     Dosage: 80 MG;BID;PO
     Route: 048
  2. TOPROL-XL [Suspect]
     Dosage: 100 MG;BID
     Dates: start: 20090824
  3. LIPITOR [Suspect]
     Dosage: 40 MG;HS
     Dates: start: 20090824
  4. ACIPHEX [Suspect]
     Dates: start: 20090824
  5. ATACAND [Suspect]
     Dosage: 32 MG;BID
     Dates: start: 20090824
  6. NIACIN [Suspect]
     Dosage: 2000 MG;QD;
     Dates: start: 20090824
  7. ASPIRIN [Suspect]
     Dosage: 162 MG;QD
     Dates: start: 20090824
  8. ADEOSINE [Concomitant]
  9. OMEPRAZOLE [Concomitant]
  10. SOTALOL [Concomitant]
  11. HYDROCHLOROTHIAZIDE [Concomitant]
  12. MULTI-VITAMIN [Concomitant]
  13. ASCORBIC ACID [Concomitant]
  14. TOCOPHEROL CONCENTRATE CAP [Concomitant]
  15. LECITHIN [Concomitant]
  16. BETACAROTENE [Concomitant]
  17. TRIAMTERENE [Concomitant]
  18. CALCIUM [Concomitant]
  19. VITAMINS [Concomitant]

REACTIONS (4)
  - AGEUSIA [None]
  - DECREASED APPETITE [None]
  - INCORRECT DOSE ADMINISTERED [None]
  - PAROSMIA [None]
